FAERS Safety Report 8001311-3 (Version None)
Quarter: 2011Q4

REPORT INFORMATION
  Report Type: 
  Country: None (occurrence: None)
  Receive Date: 20111219
  Receipt Date: 20111214
  Transmission Date: 20120403
  Serious: Yes (Other)
  Sender: FDA-Public Use
  Company Number: A0949486A

PATIENT
  Age: 66 Year
  Sex: Male

DRUGS (3)
  1. UREA PEROXIDE [Suspect]
     Indication: HEARING IMPAIRED
     Dosage: TWICE PER DAY/EAR DROPS
  2. SIMVASTATIN [Concomitant]
  3. ATORVASTATIN CACLCIUM [Concomitant]

REACTIONS (6)
  - EAR PAIN [None]
  - DIZZINESS [None]
  - FEELING ABNORMAL [None]
  - TINNITUS [None]
  - DEAFNESS BILATERAL [None]
  - BALANCE DISORDER [None]
